FAERS Safety Report 20763630 (Version 2)
Quarter: 2023Q2

REPORT INFORMATION
  Report Type: Spontaneous
  Country: US (occurrence: US)
  Receive Date: 20220428
  Receipt Date: 20230412
  Transmission Date: 20230721
  Serious: No
  Sender: FDA-Public Use
  Company Number: US-PFIZER INC-202200004496

PATIENT
  Age: 73 Year
  Sex: Male

DRUGS (2)
  1. XELJANZ XR [Suspect]
     Active Substance: TOFACITINIB CITRATE
     Dosage: 11 MG
  2. METOPROLOL [Concomitant]
     Active Substance: METOPROLOL
     Dosage: 150 MG

REACTIONS (1)
  - Cardiac disorder [Unknown]
